FAERS Safety Report 4380431-9 (Version None)
Quarter: 2004Q2

REPORT INFORMATION
  Report Type: 
  Country: None (occurrence: None)
  Receive Date: 20040614
  Receipt Date: 20040506
  Transmission Date: 20050107
  Serious: Yes (Other)
  Sender: FDA-Public Use
  Company Number: 2004030834

PATIENT
  Age: 56 Year
  Sex: Female
  Weight: 56.6996 kg

DRUGS (5)
  1. NEURONTIN [Suspect]
     Indication: CONVULSION
     Dosage: ORAL
     Route: 048
  2. LEVOTHYROXINE SODIUM [Concomitant]
  3. TOCOPHEROL CONCENTRATE CAP [Concomitant]
  4. BIOTIN (BIOTIN) [Concomitant]
  5. ESOMEPRAZOLE (ESOMEPRAZOLE) [Concomitant]

REACTIONS (2)
  - ANTICONVULSANT DRUG LEVEL INCREASED [None]
  - CONVULSION [None]
